FAERS Safety Report 8117074-7 (Version None)
Quarter: 2012Q1

REPORT INFORMATION
  Report Type: 
  Country: None (occurrence: None)
  Receive Date: 20120206
  Receipt Date: 20120130
  Transmission Date: 20120608
  Serious: Yes (Hospitalization)
  Sender: FDA-Public Use
  Company Number: FR-PFIZER INC-2012024017

PATIENT
  Age: 87 Year
  Sex: Male

DRUGS (8)
  1. LASIX [Concomitant]
     Dosage: 20 MG
  2. OMEPRAZOLE [Concomitant]
     Dosage: 20 MG
  3. ORAMORPH SR [Concomitant]
  4. SINTROM [Concomitant]
  5. CLINDAMYCIN HCL [Suspect]
     Indication: ERYSIPELAS
     Dosage: 600 MG, 3X/DAY
     Route: 042
     Dates: start: 20110726, end: 20110804
  6. CAPTOPRIL [Concomitant]
     Dosage: 25 MG
  7. LANTUS [Concomitant]
  8. NOVORAPID [Concomitant]

REACTIONS (1)
  - ANGIOEDEMA [None]
